FAERS Safety Report 5479331-2 (Version None)
Quarter: 2007Q4

REPORT INFORMATION
  Report Type: 
  Country: None (occurrence: None)
  Receive Date: 20071003
  Receipt Date: 20071003
  Transmission Date: 20080405
  Serious: Yes (Life-Threatening, Hospitalization, Other)
  Sender: FDA-Public Use
  Company Number: None

PATIENT
  Age: 32 Month
  Sex: Male

DRUGS (4)
  1. PHENYTOIN [Suspect]
     Indication: STATUS EPILEPTICUS
  2. PHENOBARBITAL TAB [Suspect]
     Indication: STATUS EPILEPTICUS
  3. VALPROATE SODIUM [Concomitant]
  4. DIAZEPAM [Concomitant]

REACTIONS (2)
  - CONVULSION [None]
  - HYPOGAMMAGLOBULINAEMIA [None]
